FAERS Safety Report 9802161 (Version 1)
Quarter: 2014Q1

REPORT INFORMATION
  Report Type: Spontaneous
  Country: US (occurrence: US)
  Receive Date: 20140107
  Receipt Date: 20140107
  Transmission Date: 20141002
  Serious: Yes (Hospitalization, Other)
  Sender: FDA-Public Use
  Company Number: US-B.I. PHARMACEUTICALS,INC./RIDGEFIELD-2014-BI-00352BP

PATIENT
  Age: 81 Year
  Sex: Male
  Weight: 91 kg

DRUGS (4)
  1. AGGRENOX [Suspect]
     Indication: CEREBROVASCULAR ACCIDENT PROPHYLAXIS
     Route: 048
     Dates: start: 20130118
  2. ATENOLOL [Concomitant]
     Indication: CARDIAC OPERATION
     Dosage: 25 MG
     Route: 048
  3. SIMVASTATIN [Concomitant]
     Dosage: 10 MG
     Route: 048
  4. DONEPEZIL [Concomitant]
     Indication: DEMENTIA ALZHEIMER^S TYPE
     Dosage: 10 MG
     Route: 048

REACTIONS (6)
  - Failure to thrive [Unknown]
  - Infarction [Not Recovered/Not Resolved]
  - Urinary tract infection [Recovered/Resolved]
  - Convulsion [Recovered/Resolved]
  - Renal failure acute [Unknown]
  - Renal failure chronic [Unknown]
